FAERS Safety Report 18112539 (Version 3)
Quarter: 2020Q3

REPORT INFORMATION
  Report Type: Spontaneous
  Country: US (occurrence: US)
  Receive Date: 20200805
  Receipt Date: 20200901
  Transmission Date: 20201103
  Serious: No
  Sender: FDA-Public Use
  Company Number: US-009507513-2007USA009841

PATIENT
  Age: 92 Year
  Sex: Female

DRUGS (1)
  1. BELSOMRA [Suspect]
     Active Substance: SUVOREXANT
     Indication: SLEEP DISORDER
     Dosage: 5 MG DAILY
     Route: 048
     Dates: start: 20200720, end: 20200721

REACTIONS (5)
  - Headache [Recovering/Resolving]
  - Product physical issue [Unknown]
  - Somnolence [Recovering/Resolving]
  - Feeling abnormal [Recovering/Resolving]
  - Product packaging difficult to open [Unknown]

NARRATIVE: CASE EVENT DATE: 2020
